FAERS Safety Report 25036021 (Version 2)
Quarter: 2025Q3

REPORT INFORMATION
  Report Type: Report from Study
  Country: CO (occurrence: CO)
  Receive Date: 20250304
  Receipt Date: 20250802
  Transmission Date: 20251020
  Serious: Yes (Hospitalization)
  Sender: ALEXION PHARMACEUTICALS
  Company Number: CO-AstraZeneca-CH-00816496A

PATIENT
  Age: 52 Year
  Sex: Male
  Weight: 57 kg

DRUGS (1)
  1. SOLIRIS [Suspect]
     Active Substance: ECULIZUMAB
     Indication: Paroxysmal nocturnal haemoglobinuria
     Dosage: 900 MILLIGRAM, Q2W
     Dates: start: 20240818

REACTIONS (1)
  - Malaise [Not Recovered/Not Resolved]

NARRATIVE: CASE EVENT DATE: 20250223
